FAERS Safety Report 5556842-2 (Version None)
Quarter: 2007Q4

REPORT INFORMATION
  Report Type: 
  Country: None (occurrence: None)
  Receive Date: 20071210
  Receipt Date: 20071210
  Transmission Date: 20080405
  Serious: No
  Sender: FDA-Public Use
  Company Number: None

PATIENT
  Age: 42 Year
  Sex: Male

DRUGS (1)
  1. FILGRASTIM [Suspect]
     Dosage: 300MCG QWEEK SQ
     Route: 058
     Dates: start: 20070827, end: 20071003

REACTIONS (1)
  - DRUG EFFECT DECREASED [None]
